FAERS Safety Report 9088362 (Version 9)
Quarter: 2014Q1

REPORT INFORMATION
  Report Type: Spontaneous
  Country: GB (occurrence: GB)
  Receive Date: 20130201
  Receipt Date: 20140117
  Transmission Date: 20141002
  Serious: Yes (Hospitalization, Other)
  Sender: FDA-Public Use
  Company Number: GB-PFIZER INC-2013039947

PATIENT
  Sex: Female

DRUGS (12)
  1. ISTIN [Suspect]
     Dosage: UNK
  2. HALOPERIDOL [Suspect]
     Dosage: 20 MG, UNK
     Dates: start: 1981
  3. DISIPAL [Suspect]
     Dosage: UNK
     Dates: start: 1981
  4. DEPIXOL [Suspect]
     Dosage: UNK
     Dates: start: 1981
  5. VALIUM [Suspect]
     Dosage: UNK
     Dates: start: 1981
  6. RELACTON-C [Suspect]
     Dosage: UNK
  7. KEMADRIN [Suspect]
     Dosage: 10 MG, UNK
     Dates: start: 19811018
  8. NORMAXIN [Suspect]
     Dosage: UNK
  9. SURMONTIL [Suspect]
     Dosage: UNK
  10. SPARINE [Suspect]
     Dosage: 100 MG, UNK
     Dates: start: 1981
  11. DROLEPTAN [Suspect]
     Dosage: UNK
  12. NORMISON [Suspect]
     Dosage: UNK

REACTIONS (36)
  - Overdose [Unknown]
  - Suicidal ideation [Unknown]
  - Intentional self-injury [Unknown]
  - Feeling abnormal [Unknown]
  - Suicide attempt [Unknown]
  - Muscle atrophy [Not Recovered/Not Resolved]
  - Arthralgia [Not Recovered/Not Resolved]
  - Pain [Not Recovered/Not Resolved]
  - Bone erosion [Not Recovered/Not Resolved]
  - Osteochondritis [Not Recovered/Not Resolved]
  - Reproductive tract disorder [Unknown]
  - Immune system disorder [Unknown]
  - Chemical poisoning [Unknown]
  - Blindness [Unknown]
  - Myelopathy [Unknown]
  - Rheumatoid arthritis [Unknown]
  - Joint destruction [Unknown]
  - Abortion spontaneous [Unknown]
  - Benign hydatidiform mole [Unknown]
  - Dyskinesia [Unknown]
  - Amnesia [Unknown]
  - Disturbance in attention [Unknown]
  - Intraocular pressure increased [Unknown]
  - Depression [Unknown]
  - Hallucination, visual [Unknown]
  - Mental disorder [Unknown]
  - Movement disorder [Unknown]
  - Musculoskeletal discomfort [Unknown]
  - Osteoarthritis [Unknown]
  - Heart rate irregular [Unknown]
  - Neck pain [Unknown]
  - Myalgia [Unknown]
  - Palpitations [Unknown]
  - Cytogenetic abnormality [Unknown]
  - Sensory disturbance [Unknown]
  - Victim of child abuse [Unknown]
